FAERS Safety Report 10252928 (Version 1)
Quarter: 2014Q2

REPORT INFORMATION
  Report Type: Spontaneous
  Country: US (occurrence: US)
  Receive Date: 20140623
  Receipt Date: 20140623
  Transmission Date: 20141212
  Serious: No
  Sender: FDA-Public Use
  Company Number: US-PFIZER INC-2014171356

PATIENT
  Age: 36 Year
  Sex: Male
  Weight: 86.17 kg

DRUGS (1)
  1. XELJANZ [Suspect]
     Indication: RHEUMATOID ARTHRITIS
     Dosage: 5 MG, 2X/DAY
     Route: 048
     Dates: start: 20140411, end: 20140606

REACTIONS (3)
  - Alopecia [Unknown]
  - Urticaria [Unknown]
  - Treatment failure [Unknown]
